FAERS Safety Report 17044423 (Version 1)
Quarter: 2019Q4

REPORT INFORMATION
  Report Type: Spontaneous
  Country: US (occurrence: US)
  Receive Date: 20191017
  Receipt Date: 20191017
  Transmission Date: 20200122
  Serious: Yes (Life-Threatening, Disabling)
  Sender: FDA-Public Use
  Company Number: None

PATIENT
  Age: 62 Year
  Sex: Female
  Weight: 88.45 kg

DRUGS (25)
  1. MOBIC [Concomitant]
     Active Substance: MELOXICAM
  2. FLONAS [Concomitant]
  3. OMEGA 3 FISH OIL [Concomitant]
     Active Substance: FISH OIL\OMEGA-3 FATTY ACIDS
  4. ASPIRIN. [Concomitant]
     Active Substance: ASPIRIN
  5. BIOTIN [Concomitant]
     Active Substance: BIOTIN
  6. METHOCARBAMOL. [Concomitant]
     Active Substance: METHOCARBAMOL
  7. VAGIFEM [Concomitant]
     Active Substance: ESTRADIOL
  8. HUMIRA [Suspect]
     Active Substance: ADALIMUMAB
     Indication: RHEUMATOID ARTHRITIS
     Dosage: ?          QUANTITY:40 MG MILLIGRAM(S);?
     Dates: start: 2015, end: 20170519
  9. HCTZ [Concomitant]
     Active Substance: HYDROCHLOROTHIAZIDE
  10. BIOFREEZE [Concomitant]
     Active Substance: MENTHOL
  11. MULTIVITAM [Concomitant]
  12. FOLIC ACID. [Concomitant]
     Active Substance: FOLIC ACID
  13. MAGOXIDE [Concomitant]
  14. VALTREX [Concomitant]
     Active Substance: VALACYCLOVIR HYDROCHLORIDE
  15. ALLEGRA [Concomitant]
     Active Substance: FEXOFENADINE HYDROCHLORIDE
  16. XELJANZ XR [Concomitant]
     Active Substance: TOFACITINIB CITRATE
  17. XOPENEX [Concomitant]
     Active Substance: LEVALBUTEROL HYDROCHLORIDE
  18. RASVO [Concomitant]
  19. SYNTHROID [Concomitant]
     Active Substance: LEVOTHYROXINE SODIUM
  20. DEVILANT DR [Concomitant]
  21. VITAMIN D [Concomitant]
     Active Substance: VITAMIN D NOS
  22. SINGULAIR [Concomitant]
     Active Substance: MONTELUKAST SODIUM
  23. PROAIR HFA 10% [Concomitant]
  24. POT CL MICRO [Concomitant]
  25. LINZESS [Concomitant]
     Active Substance: LINACLOTIDE

REACTIONS (2)
  - Contusion [None]
  - Deep vein thrombosis [None]

NARRATIVE: CASE EVENT DATE: 20170512
